FAERS Safety Report 19741262 (Version 2)
Quarter: 2021Q3

REPORT INFORMATION
  Report Type: Spontaneous
  Country: JP (occurrence: JP)
  Receive Date: 20210824
  Receipt Date: 20210927
  Transmission Date: 20211014
  Serious: Yes (Other)
  Sender: FDA-Public Use
  Company Number: NVSJ2021JP012370

PATIENT

DRUGS (1)
  1. VOTRIENT [Suspect]
     Active Substance: PAZOPANIB HYDROCHLORIDE
     Indication: OSTEOSARCOMA
     Dosage: UNK
     Route: 048

REACTIONS (3)
  - Osteosarcoma [Unknown]
  - Product use in unapproved indication [Unknown]
  - Malignant neoplasm progression [Unknown]
